FAERS Safety Report 7136511-8 (Version None)
Quarter: 2010Q4

REPORT INFORMATION
  Report Type: 
  Country: None (occurrence: None)
  Receive Date: 20101206
  Receipt Date: 20060207
  Transmission Date: 20110411
  Serious: Yes (Death)
  Sender: FDA-Public Use
  Company Number: NL-ACTELION-A-CH2006-11601

PATIENT
  Sex: Female

DRUGS (4)
  1. TRACLEER [Suspect]
     Indication: AUTOIMMUNE DISORDER
     Dosage: 125 MG, BID
     Route: 048
     Dates: start: 20041015
  2. TRACLEER [Suspect]
     Dosage: 62.5 MG, BID
     Route: 048
     Dates: start: 20031227, end: 20040104
  3. TRACLEER [Suspect]
     Dosage: 125 MG, BID
     Route: 048
     Dates: start: 20040105, end: 20040527
  4. TRACLEER [Suspect]
     Dosage: 125 MG, BID
     Route: 048
     Dates: end: 20041012

REACTIONS (1)
  - DEATH [None]
